FAERS Safety Report 18413981 (Version 2)
Quarter: 2020Q4

REPORT INFORMATION
  Report Type: Spontaneous
  Country: ES (occurrence: ES)
  Receive Date: 20201022
  Receipt Date: 20201125
  Transmission Date: 20210114
  Serious: Yes (Other)
  Sender: FDA-Public Use
  Company Number: NVSC2020ES282029

PATIENT
  Age: 64 Year
  Sex: Female

DRUGS (8)
  1. RITUXIMAB. [Suspect]
     Active Substance: RITUXIMAB
     Indication: LYMPHOMA
     Dosage: UNK, QW  (1 MG/0,1ML INJECTIONS)
     Route: 031
  2. METHOTREXATE. [Suspect]
     Active Substance: METHOTREXATE
     Indication: DIFFUSE LARGE B-CELL LYMPHOMA RECURRENT
     Dosage: UNK (SYSTEMIC CHEMOTHERAPY)
     Route: 065
  3. CYCLOPHOSPHAMIDE. [Concomitant]
     Active Substance: CYCLOPHOSPHAMIDE
     Indication: DIFFUSE LARGE B-CELL LYMPHOMA RECURRENT
     Dosage: UNK (SYSTEMIC CHEMOTHERAPY)
     Route: 065
  4. CYTARABINE. [Concomitant]
     Active Substance: CYTARABINE
     Indication: DIFFUSE LARGE B-CELL LYMPHOMA RECURRENT
     Dosage: UNK
     Route: 065
  5. METHOTREXATE. [Suspect]
     Active Substance: METHOTREXATE
     Indication: LYMPHOMA
     Dosage: UNK 1 MG/0,1ML (INJECTION)
     Route: 031
  6. VINCRISTINE [Concomitant]
     Active Substance: VINCRISTINE
     Indication: DIFFUSE LARGE B-CELL LYMPHOMA RECURRENT
     Dosage: UNK (SYSTEMIC CHEMOTHERAPY)
     Route: 065
  7. DOXORUBICIN [Concomitant]
     Active Substance: DOXORUBICIN
     Indication: DIFFUSE LARGE B-CELL LYMPHOMA RECURRENT
     Dosage: UNK (SYSTEMIC CHEMOTHERAPY)
     Route: 065
  8. DEXAMETHASONE. [Concomitant]
     Active Substance: DEXAMETHASONE
     Indication: DIFFUSE LARGE B-CELL LYMPHOMA RECURRENT
     Dosage: UNK (SYSTEMIC CHEMOTHERAPY)
     Route: 065

REACTIONS (2)
  - Vitritis [Unknown]
  - Vitreous haze [Unknown]
